FAERS Safety Report 23770395 (Version 1)
Quarter: 2024Q2

REPORT INFORMATION
  Report Type: Spontaneous
  Country: US (occurrence: US)
  Receive Date: 20240422
  Receipt Date: 20240422
  Transmission Date: 20240716
  Serious: No
  Sender: FDA-Public Use
  Company Number: US-SA-SAC20240419000493

PATIENT
  Sex: Female
  Weight: 113.3 kg

DRUGS (3)
  1. DUPIXENT [Suspect]
     Active Substance: DUPILUMAB
     Indication: Asthma
     Dosage: 300 MG QOW
     Route: 058
     Dates: start: 20200128
  2. DEVICE [Concomitant]
     Active Substance: DEVICE
  3. EUFLEXXA [Concomitant]
     Active Substance: HYALURONATE SODIUM

REACTIONS (1)
  - Pain [Not Recovered/Not Resolved]
